FAERS Safety Report 12311848 (Version 1)
Quarter: 2016Q2

REPORT INFORMATION
  Report Type: Spontaneous
  Country: FR (occurrence: FR)
  Receive Date: 20160427
  Receipt Date: 20160427
  Transmission Date: 20160815
  Serious: Yes (Other)
  Sender: FDA-Public Use
  Company Number: FR-TEVA-650914ISR

PATIENT
  Age: 73 Year
  Sex: Male

DRUGS (1)
  1. ISOTRETINOINE TEVA 20 MG [Suspect]
     Active Substance: ISOTRETINOIN
     Indication: RETINAL DETACHMENT
     Route: 065

REACTIONS (3)
  - Retinal detachment [Unknown]
  - Nervous system disorder [Unknown]
  - Eye disorder [Unknown]
